FAERS Safety Report 14624568 (Version 1)
Quarter: 2018Q1

REPORT INFORMATION
  Report Type: Spontaneous
  Country: US (occurrence: US)
  Receive Date: 20180311
  Receipt Date: 20180311
  Transmission Date: 20180509
  Serious: Yes (Hospitalization)
  Sender: FDA-Public Use
  Company Number: None

PATIENT
  Age: 46 Year
  Sex: Female
  Weight: 123 kg

DRUGS (2)
  1. RECLAST [Suspect]
     Active Substance: ZOLEDRONIC ACID
     Indication: RED BLOOD CELL SEDIMENTATION RATE INCREASED
     Dosage: ?          OTHER FREQUENCY:ONCE;?
     Route: 042
     Dates: start: 20180306, end: 20180306
  2. RECLAST [Suspect]
     Active Substance: ZOLEDRONIC ACID
     Indication: SYSTEMIC LUPUS ERYTHEMATOSUS
     Dosage: ?          OTHER FREQUENCY:ONCE;?
     Route: 042
     Dates: start: 20180306, end: 20180306

REACTIONS (10)
  - Swelling face [None]
  - Pyrexia [None]
  - Vomiting [None]
  - Hypotension [None]
  - Nausea [None]
  - Chills [None]
  - Systemic inflammatory response syndrome [None]
  - Obesity [None]
  - Hypoaesthesia oral [None]
  - Dehydration [None]

NARRATIVE: CASE EVENT DATE: 20180306
